FAERS Safety Report 17689120 (Version 1)
Quarter: 2020Q2

REPORT INFORMATION
  Report Type: Spontaneous
  Country: US (occurrence: US)
  Receive Date: 20200421
  Receipt Date: 20200421
  Transmission Date: 20200714
  Serious: No
  Sender: FDA-Public Use
  Company Number: US-DUCHESNAY-2020US000002

PATIENT
  Age: 71 Year
  Sex: Female

DRUGS (2)
  1. OSPHENA [Suspect]
     Active Substance: OSPEMIFENE
     Indication: CYSTITIS
     Dosage: 60 MILLIGRAM, QD
     Route: 048
     Dates: start: 201910
  2. ESTRADIOL. [Concomitant]
     Active Substance: ESTRADIOL
     Indication: PRODUCT USED FOR UNKNOWN INDICATION
     Dosage: UNK, ONCE A WEEK
     Route: 062

REACTIONS (3)
  - Off label use [Not Recovered/Not Resolved]
  - Bladder spasm [Not Recovered/Not Resolved]
  - Labelled drug-drug interaction medication error [Not Recovered/Not Resolved]

NARRATIVE: CASE EVENT DATE: 201910
